FAERS Safety Report 5872265-0 (Version None)
Quarter: 2008Q3

REPORT INFORMATION
  Report Type: 
  Country: None (occurrence: None)
  Receive Date: 20080905
  Receipt Date: 20080818
  Transmission Date: 20090109
  Serious: Yes (Hospitalization)
  Sender: FDA-Public Use
  Company Number: PL-MERCK-0808POL00012

PATIENT
  Age: 48 Year
  Sex: Male

DRUGS (4)
  1. PRIMAXIN [Suspect]
     Route: 041
  2. AMOXICILLIN AND CLAVULANATE POTASSIUM [Concomitant]
     Route: 065
  3. VANCOMYCIN [Concomitant]
     Route: 065
  4. CEFTAZIDIME [Concomitant]
     Route: 065

REACTIONS (2)
  - BURKHOLDERIA CEPACIA INFECTION [None]
  - DRUG RESISTANCE [None]
